FAERS Safety Report 6860391-9 (Version None)
Quarter: 2010Q3

REPORT INFORMATION
  Report Type: 
  Country: None (occurrence: None)
  Receive Date: 20100720
  Receipt Date: 20100712
  Transmission Date: 20110219
  Serious: Yes (Hospitalization)
  Sender: FDA-Public Use
  Company Number: JP-ROCHE-706979

PATIENT
  Sex: Female
  Weight: 59 kg

DRUGS (12)
  1. ACTEMRA [Suspect]
     Indication: RHEUMATOID ARTHRITIS
     Dosage: DOSAGE UNCERTAIN.
     Route: 041
     Dates: start: 20100121, end: 20100420
  2. RHEUMATREX [Concomitant]
     Route: 048
     Dates: start: 20090911, end: 20100420
  3. RHEUMATREX [Concomitant]
     Route: 048
     Dates: start: 20090911, end: 20100511
  4. PREDONINE [Concomitant]
     Route: 048
     Dates: start: 20010101
  5. PREDONINE [Concomitant]
     Route: 048
     Dates: start: 20010101
  6. PREDNISOLONE [Concomitant]
     Route: 048
     Dates: start: 20010101
  7. LIVALO [Concomitant]
     Route: 048
     Dates: start: 20100203, end: 20100511
  8. CELCOX [Concomitant]
     Dosage: DRUG REPORTED AS CELECOX
     Route: 048
     Dates: start: 20100317, end: 20100603
  9. ZANTAC [Concomitant]
     Route: 048
     Dates: start: 20100317, end: 20100603
  10. MUCOSTA [Concomitant]
     Route: 048
     Dates: start: 20090728, end: 20100603
  11. ONEALFA [Concomitant]
     Route: 048
     Dates: start: 20090823
  12. FOLIAMIN [Concomitant]
     Route: 048
     Dates: start: 20090911, end: 20100511

REACTIONS (2)
  - EOSINOPHILIA [None]
  - URTICARIA [None]
